FAERS Safety Report 8557344-1 (Version None)
Quarter: 2012Q3

REPORT INFORMATION
  Report Type: 
  Country: None (occurrence: None)
  Receive Date: 20120801
  Receipt Date: 20120726
  Transmission Date: 20120928
  Serious: Yes (Disabling, Other)
  Sender: FDA-Public Use
  Company Number: US-PFIZER INC-2012171046

PATIENT
  Sex: Female
  Weight: 84.354 kg

DRUGS (3)
  1. PREMARIN [Suspect]
     Indication: HORMONE REPLACEMENT THERAPY
     Dosage: 0.9 MG, DAILY
     Dates: start: 20020101
  2. INTERFERON [Suspect]
     Indication: AUTOIMMUNE DISORDER
     Dosage: UNK
     Dates: start: 20040101, end: 20050101
  3. TOPROL-XL [Concomitant]
     Indication: HYPERTENSION
     Dosage: 25 MG, 2X/DAY

REACTIONS (6)
  - AUTOIMMUNE DISORDER [None]
  - INJURY [None]
  - BONE DISORDER [None]
  - MULTIPLE SCLEROSIS [None]
  - PAIN [None]
  - NERVOUS SYSTEM DISORDER [None]
